FAERS Safety Report 23203562 (Version 2)
Quarter: 2023Q4

REPORT INFORMATION
  Report Type: Spontaneous
  Country: US (occurrence: US)
  Receive Date: 20231120
  Receipt Date: 20231120
  Transmission Date: 20240110
  Serious: No
  Sender: FDA-Public Use
  Company Number: US-OPELLA-2023OHG014875

PATIENT
  Sex: Female

DRUGS (1)
  1. DULCOLAX PINK [Suspect]
     Active Substance: BISACODYL
     Indication: Product used for unknown indication
     Dosage: 2 TABLETS

REACTIONS (2)
  - Product prescribing error [Unknown]
  - No adverse event [Unknown]
